FAERS Safety Report 25259116 (Version 1)
Quarter: 2025Q2

REPORT INFORMATION
  Report Type: Spontaneous
  Country: US (occurrence: US)
  Receive Date: 20250501
  Receipt Date: 20250501
  Transmission Date: 20250717
  Serious: Yes (Other)
  Sender: CHIESI
  Company Number: US-CHIESI-2025CHF02919

PATIENT
  Age: 4 Year
  Sex: Female

DRUGS (1)
  1. LAMZEDE [Suspect]
     Active Substance: VELMANASE ALFA-TYCV
     Indication: Product used for unknown indication
     Dosage: UNK, QW
     Route: 065

REACTIONS (1)
  - Congenital musculoskeletal disorder of skull [Unknown]
